FAERS Safety Report 5695497-3 (Version None)
Quarter: 2008Q2

REPORT INFORMATION
  Report Type: 
  Country: None (occurrence: None)
  Receive Date: 20080407
  Receipt Date: 20080402
  Transmission Date: 20081010
  Serious: Yes (Hospitalization, Other)
  Sender: FDA-Public Use
  Company Number: SE-RANBAXY-2008US-13832

PATIENT

DRUGS (4)
  1. ISOPTIN SR [Suspect]
     Indication: HYPERTENSION
     Dosage: UNK, UNK
     Route: 048
  2. ISOPTIN SR [Suspect]
     Indication: RENAL FAILURE
  3. ALLOPURINOL [Suspect]
     Indication: HYPERTENSION
  4. ENALAPRIL MALEATE [Suspect]
     Indication: HYPERTENSION

REACTIONS (6)
  - BRADYCARDIA [None]
  - BUNDLE BRANCH BLOCK LEFT [None]
  - DEHYDRATION [None]
  - NEPHROSCLEROSIS [None]
  - PRESYNCOPE [None]
  - RENAL FAILURE [None]
